FAERS Safety Report 19749471 (Version 1)
Quarter: 2021Q3

REPORT INFORMATION
  Report Type: Report from Study
  Country: CN (occurrence: CN)
  Receive Date: 20210826
  Receipt Date: 20210826
  Transmission Date: 20211014
  Serious: Yes (Death)
  Sender: FDA-Public Use
  Company Number: CN-ELI_LILLY_AND_COMPANY-CN202108010832

PATIENT

DRUGS (3)
  1. TORIPALIMAB. [Concomitant]
     Active Substance: TORIPALIMAB
     Indication: NASOPHARYNGEAL CANCER
     Dosage: 240 MG, CYCLICAL (EVERY 3 WEEKS)
     Route: 042
  2. CISPLATIN. [Concomitant]
     Active Substance: CISPLATIN
     Indication: NASOPHARYNGEAL CANCER
     Dosage: 80 MG, CYCLICAL (EVERY 3 WEEKS)
     Route: 042
  3. GEMCITABINE HYDROCHLORIDE. [Suspect]
     Active Substance: GEMCITABINE HYDROCHLORIDE
     Indication: NASOPHARYNGEAL CANCER
     Dosage: 1000 MG, CYCLICAL (EVERY 3 WEEKS)
     Route: 042

REACTIONS (1)
  - Haemorrhage intracranial [Fatal]
